FAERS Safety Report 9527448 (Version 9)
Quarter: 2016Q1

REPORT INFORMATION
  Report Type: Spontaneous
  Country: CA (occurrence: CA)
  Receive Date: 20130917
  Receipt Date: 20160203
  Transmission Date: 20160526
  Serious: Yes (Hospitalization, Other)
  Sender: FDA-Public Use
  Company Number: CA-ROCHE-1274702

PATIENT
  Age: 33 Year
  Sex: Female

DRUGS (9)
  1. AVAMYS [Concomitant]
     Active Substance: FLUTICASONE FUROATE
  2. XOLAIR [Suspect]
     Active Substance: OMALIZUMAB
     Indication: ASTHMA
     Route: 058
     Dates: start: 20140924
  3. XOLAIR [Suspect]
     Active Substance: OMALIZUMAB
     Route: 058
     Dates: start: 201511
  4. PREDNISONE. [Concomitant]
     Active Substance: PREDNISONE
  5. ASMANEX [Concomitant]
     Active Substance: MOMETASONE FUROATE
  6. XOLAIR [Suspect]
     Active Substance: OMALIZUMAB
     Route: 058
     Dates: start: 20150625
  7. XOLAIR [Suspect]
     Active Substance: OMALIZUMAB
     Indication: ASTHMA
     Route: 058
     Dates: start: 20130528
  8. SYMBICORT [Concomitant]
     Active Substance: BUDESONIDE\FORMOTEROL FUMARATE DIHYDRATE
  9. CORTISONE [Concomitant]
     Active Substance: CORTISONE\HYDROCORTISONE

REACTIONS (18)
  - Hypoaesthesia [Recovered/Resolved]
  - Limb discomfort [Recovered/Resolved]
  - Injection site warmth [Recovered/Resolved]
  - Rhonchi [Not Recovered/Not Resolved]
  - Peripheral swelling [Recovered/Resolved]
  - Oedema peripheral [Unknown]
  - Pyrexia [Unknown]
  - Asthma [Recovering/Resolving]
  - Paraesthesia [Recovered/Resolved]
  - Sinusitis [Recovered/Resolved]
  - Weight decreased [Unknown]
  - Sputum discoloured [Not Recovered/Not Resolved]
  - Cough [Not Recovered/Not Resolved]
  - Muscular weakness [Unknown]
  - Fatigue [Unknown]
  - Alopecia [Unknown]
  - Ear infection [Unknown]
  - Muscle disorder [Unknown]

NARRATIVE: CASE EVENT DATE: 20150625
